FAERS Safety Report 19674991 (Version 1)
Quarter: 2021Q3

REPORT INFORMATION
  Report Type: Report from Study
  Country: US (occurrence: US)
  Receive Date: 20210809
  Receipt Date: 20210809
  Transmission Date: 20211014
  Serious: Yes (Other)
  Sender: FDA-Public Use
  Company Number: US-ROCHE-2885581

PATIENT
  Age: 70 Year
  Sex: Male
  Weight: 83.6 kg

DRUGS (1)
  1. ATEZOLIZUMAB. [Suspect]
     Active Substance: ATEZOLIZUMAB
     Indication: ALVEOLAR SOFT PART SARCOMA
     Route: 041

REACTIONS (2)
  - Atrial fibrillation [Unknown]
  - Vertigo [Unknown]
